FAERS Safety Report 8565247-1 (Version None)
Quarter: 2012Q3

REPORT INFORMATION
  Report Type: 
  Country: None (occurrence: None)
  Receive Date: 20120803
  Receipt Date: 20120725
  Transmission Date: 20120928
  Serious: Yes (Other)
  Sender: FDA-Public Use
  Company Number: GR-GLAXOSMITHKLINE-B0818434A

PATIENT
  Age: 78 Year
  Sex: Female

DRUGS (2)
  1. ARIXTRA [Suspect]
     Indication: PRODUCT USED FOR UNKNOWN INDICATION
     Route: 065
  2. CLOPIDOGREL [Concomitant]
     Indication: COAGULOPATHY
     Route: 065

REACTIONS (4)
  - WOUND [None]
  - SUBDURAL HAEMATOMA [None]
  - SENSORY LOSS [None]
  - PARESIS [None]
